FAERS Safety Report 13302352 (Version 8)
Quarter: 2017Q3

REPORT INFORMATION
  Report Type: Spontaneous
  Country: US (occurrence: US)
  Receive Date: 20170307
  Receipt Date: 20170714
  Transmission Date: 20171127
  Serious: Yes (Other)
  Sender: FDA-Public Use
  Company Number: PHEH2017US006190

PATIENT
  Sex: Female

DRUGS (10)
  1. RECLAST [Suspect]
     Active Substance: ZOLEDRONIC ACID
     Dosage: UNK
     Route: 041
     Dates: start: 2013
  2. PROLIA [Concomitant]
     Active Substance: DENOSUMAB
     Indication: PRODUCT USED FOR UNKNOWN INDICATION
     Dosage: UNK
     Route: 065
  3. RECLAST [Suspect]
     Active Substance: ZOLEDRONIC ACID
     Dosage: UNK
     Route: 065
     Dates: start: 2017
  4. CALCIUM [Concomitant]
     Active Substance: CALCIUM
     Indication: PRODUCT USED FOR UNKNOWN INDICATION
     Dosage: UNK UNK, QD
     Route: 065
  5. RECLAST [Suspect]
     Active Substance: ZOLEDRONIC ACID
     Indication: OSTEOPOROSIS
     Dosage: UNK
     Route: 041
     Dates: start: 20081215
  6. RECLAST [Suspect]
     Active Substance: ZOLEDRONIC ACID
     Dosage: UNK
     Route: 041
     Dates: start: 20110124
  7. VITAMIN D [Concomitant]
     Active Substance: CHOLECALCIFEROL
     Indication: PRODUCT USED FOR UNKNOWN INDICATION
     Dosage: UNK UNK, QD
     Route: 065
  8. RECLAST [Suspect]
     Active Substance: ZOLEDRONIC ACID
     Dosage: UNK
     Route: 041
     Dates: start: 20100120
  9. RECLAST [Suspect]
     Active Substance: ZOLEDRONIC ACID
     Dosage: UNK
     Route: 041
     Dates: start: 20120809
  10. MAGNESIUM [Concomitant]
     Active Substance: MAGNESIUM
     Indication: PRODUCT USED FOR UNKNOWN INDICATION
     Dosage: UNK UNK, QD
     Route: 065

REACTIONS (34)
  - Tendon rupture [Unknown]
  - Influenza like illness [Unknown]
  - Bone pain [Unknown]
  - Bone fistula [Unknown]
  - Foot fracture [Not Recovered/Not Resolved]
  - Post procedural complication [Unknown]
  - Intervertebral disc degeneration [Unknown]
  - Upper respiratory tract infection [Unknown]
  - Paraesthesia [Unknown]
  - Muscular weakness [Unknown]
  - Infection [Unknown]
  - Initial insomnia [Unknown]
  - Gastroenteritis [Unknown]
  - Arthralgia [Unknown]
  - Neck pain [Unknown]
  - Haematochezia [Unknown]
  - Dental caries [Unknown]
  - Bone loss [Unknown]
  - Brachial plexopathy [Unknown]
  - Vulvovaginal candidiasis [Unknown]
  - Rotator cuff syndrome [Unknown]
  - Thoracic vertebral fracture [Not Recovered/Not Resolved]
  - Tooth abscess [Unknown]
  - Swelling [Unknown]
  - Fatigue [Unknown]
  - Hypoaesthesia [Unknown]
  - Vomiting [Unknown]
  - Joint instability [Unknown]
  - Barrett^s oesophagus [Unknown]
  - Fall [Unknown]
  - Lymphadenopathy [Unknown]
  - Pain [Unknown]
  - Transplant failure [Unknown]
  - Muscle spasms [Unknown]

NARRATIVE: CASE EVENT DATE: 2014
